FAERS Safety Report 11119926 (Version 1)
Quarter: 2015Q2

REPORT INFORMATION
  Report Type: Spontaneous
  Country: US (occurrence: BR)
  Receive Date: 20150518
  Receipt Date: 20150518
  Transmission Date: 20150821
  Serious: Yes (Life-Threatening, Disabling)
  Sender: FDA-Public Use
  Company Number: BR-FRI-1000076572

PATIENT
  Age: 64 Year
  Sex: Male
  Weight: 68 kg

DRUGS (13)
  1. NOVALGIN [Concomitant]
     Active Substance: METAMIZOLE SODIUM
  2. DIMETICONE [Concomitant]
     Active Substance: DIMETHICONE
  3. CEFTAROLINE FOSAMIL [Suspect]
     Active Substance: CEFTAROLINE FOSAMIL
     Indication: SKIN INFECTION
     Dosage: TWO TIMES A DAY
     Route: 042
     Dates: start: 20150322, end: 20150322
  4. CEFTAROLINE FOSAMIL [Suspect]
     Active Substance: CEFTAROLINE FOSAMIL
     Indication: SOFT TISSUE INFECTION
     Dosage: TWO TIMES A DAY
     Route: 042
     Dates: start: 20150322, end: 20150322
  5. COZAAR [Concomitant]
     Active Substance: LOSARTAN POTASSIUM
  6. TAMARINE [Concomitant]
  7. ASA [Concomitant]
     Active Substance: ASPIRIN
  8. DIGESAN [Concomitant]
     Active Substance: BROMOPRIDE
  9. FORASEQ [Suspect]
     Active Substance: BUDESONIDE\FORMOTEROL FUMARATE
     Indication: CHRONIC OBSTRUCTIVE PULMONARY DISEASE
     Route: 055
  10. CRESTOR [Suspect]
     Active Substance: ROSUVASTATIN CALCIUM
     Dosage: UNKNOWN DOSAGE
     Route: 048
  11. LYRICA [Concomitant]
     Active Substance: PREGABALIN
  12. CLEXANE [Concomitant]
     Active Substance: ENOXAPARIN SODIUM
     Indication: THROMBOSIS PROPHYLAXIS
  13. BISACODIL [Concomitant]

REACTIONS (8)
  - Vascular injury [Recovering/Resolving]
  - Soft tissue infection [Unknown]
  - Fall [Unknown]
  - Ankle fracture [Recovering/Resolving]
  - Bronchospasm [Recovered/Resolved]
  - Rash [Not Recovered/Not Resolved]
  - Joint dislocation [Recovering/Resolving]
  - Skin infection [Unknown]

NARRATIVE: CASE EVENT DATE: 20150312
